FAERS Safety Report 6069819-8 (Version None)
Quarter: 2009Q1

REPORT INFORMATION
  Report Type: 
  Country: None (occurrence: None)
  Receive Date: 20090209
  Receipt Date: 20090127
  Transmission Date: 20090719
  Serious: Yes (Death)
  Sender: FDA-Public Use
  Company Number: US-BIOGENIDEC-2008BI030844

PATIENT
  Age: 24 Year
  Sex: Female
  Weight: 87 kg

DRUGS (6)
  1. TYSABRI [Suspect]
     Indication: MULTIPLE SCLEROSIS
     Route: 042
     Dates: start: 20071015, end: 20081021
  2. COREG [Concomitant]
     Indication: CARDIAC FAILURE CONGESTIVE
  3. CAPTOPRIL [Concomitant]
     Indication: CARDIAC FAILURE CONGESTIVE
  4. PRINIVIL [Concomitant]
     Indication: CARDIAC FAILURE CONGESTIVE
  5. NORTRIPTYLINE HCL [Concomitant]
  6. BUMEX [Concomitant]
     Indication: CARDIAC FAILURE CONGESTIVE

REACTIONS (2)
  - CONGESTIVE CARDIOMYOPATHY [None]
  - FALL [None]
